FAERS Safety Report 9053399 (Version 1)
Quarter: 2013Q1

REPORT INFORMATION
  Report Type: Spontaneous
  Country: DE (occurrence: DE)
  Receive Date: 20130208
  Receipt Date: 20130208
  Transmission Date: 20140127
  Serious: Yes (Other)
  Sender: FDA-Public Use
  Company Number: DE-TEVA-376698GER

PATIENT
  Sex: Female

DRUGS (3)
  1. LETROZOLE [Suspect]
     Indication: BREAST CANCER
     Route: 048
     Dates: start: 201210
  2. TAMOXIFEN [Concomitant]
     Indication: BREAST CANCER
     Dates: start: 2009
  3. TAMOXIFEN [Concomitant]
     Dates: start: 201301

REACTIONS (4)
  - Angioedema [Unknown]
  - Angioedema [Unknown]
  - Fluid retention [Unknown]
  - Ovarian cyst [Unknown]
